FAERS Safety Report 5251372-X (Version None)
Quarter: 2007Q1

REPORT INFORMATION
  Report Type: 
  Country: None (occurrence: None)
  Receive Date: 20070228
  Receipt Date: 20060728
  Transmission Date: 20070707
  Serious: No
  Sender: FDA-Public Use
  Company Number: US-GLAXOSMITHKLINE-A0604053A

PATIENT
  Age: 24 Year
  Sex: Male

DRUGS (2)
  1. LAMICTAL [Suspect]
     Indication: BIPOLAR DISORDER
     Dosage: 25MG PER DAY
     Route: 048
     Dates: start: 20060421
  2. VITAMINS [Concomitant]

REACTIONS (9)
  - DRY SKIN [None]
  - HEADACHE [None]
  - INSOMNIA [None]
  - LIP DRY [None]
  - MOUTH PLAQUE [None]
  - PRURITUS [None]
  - RASH [None]
  - SOMNOLENCE [None]
  - VISION BLURRED [None]
